FAERS Safety Report 6143773-2 (Version None)
Quarter: 2009Q2

REPORT INFORMATION
  Report Type: 
  Country: None (occurrence: None)
  Receive Date: 20090403
  Receipt Date: 20090325
  Transmission Date: 20091009
  Serious: Yes (Other)
  Sender: FDA-Public Use
  Company Number: PHHY2009CN12060

PATIENT
  Sex: Male
  Weight: 2.8 kg

DRUGS (1)
  1. SEBIVO [Suspect]
     Dosage: MATERNAL DOSE: 600 MG DAILY
     Route: 064

REACTIONS (2)
  - DRUG EXPOSURE DURING PREGNANCY [None]
  - PREMATURE BABY [None]
